FAERS Safety Report 8367309-0 (Version None)
Quarter: 2012Q2

REPORT INFORMATION
  Report Type: 
  Country: None (occurrence: None)
  Receive Date: 20120517
  Receipt Date: 20120507
  Transmission Date: 20120825
  Serious: No
  Sender: FDA-Public Use
  Company Number: US-ASTRAZENECA-2012SE29450

PATIENT

DRUGS (2)
  1. CRESTOR [Suspect]
     Dosage: 5 MG EVERY OTHER DAY
     Route: 048
  2. CRESTOR [Suspect]
     Route: 048

REACTIONS (2)
  - OFF LABEL USE [None]
  - MYALGIA [None]
